FAERS Safety Report 7736901-6 (Version None)
Quarter: 2011Q3

REPORT INFORMATION
  Report Type: 
  Country: None (occurrence: None)
  Receive Date: 20110908
  Receipt Date: 20110830
  Transmission Date: 20111222
  Serious: Yes (Hospitalization)
  Sender: FDA-Public Use
  Company Number: PHHO2011AU14877

PATIENT
  Sex: Female

DRUGS (7)
  1. ACETAMINOPHEN [Concomitant]
     Dosage: 1 G, UNK
     Route: 048
     Dates: start: 20110414
  2. SOTALOL HCL [Concomitant]
     Dosage: 40 MG, ONCE/SINGLE
     Route: 048
     Dates: start: 20060901
  3. AFINITOR [Suspect]
     Indication: RENAL CELL CARCINOMA
  4. CLOPIDOGREL [Concomitant]
     Dosage: 75 MG, ONCE/SINGLE
     Route: 048
     Dates: start: 20041101, end: 20110506
  5. LEVOTHYROXINE SODIUM [Concomitant]
     Dosage: 100 UG, ONCE/SINGLE
     Dates: start: 20020801
  6. SUNITINIB MALATE [Concomitant]
     Dosage: 37.5 UKN, UNK
  7. LYRICA [Concomitant]
     Dosage: 150 MG, UNK
     Route: 048
     Dates: start: 20110414

REACTIONS (1)
  - ANGINA PECTORIS [None]
